FAERS Safety Report 6022282-5 (Version None)
Quarter: 2008Q4

REPORT INFORMATION
  Report Type: 
  Country: None (occurrence: None)
  Receive Date: 20081229
  Receipt Date: 20081229
  Transmission Date: 20090506
  Serious: Yes (Life-Threatening, Other)
  Sender: FDA-Public Use
  Company Number: None

PATIENT
  Sex: Female
  Weight: 128.368 kg

DRUGS (1)
  1. PEG-33504 ELECTROLYTES [Suspect]
     Indication: COLONOSCOPY
     Dosage: 8 TO 10 MG EVERY 15 MIN MOUTH
     Route: 048
     Dates: start: 20081124

REACTIONS (18)
  - ABDOMINAL PAIN LOWER [None]
  - ASTHENIA [None]
  - BRONCHITIS [None]
  - COUGH [None]
  - DYSGEUSIA [None]
  - DYSPHONIA [None]
  - FAECES DISCOLOURED [None]
  - FATIGUE [None]
  - FEELING ABNORMAL [None]
  - HYPOPHAGIA [None]
  - ILL-DEFINED DISORDER [None]
  - MALAISE [None]
  - NAUSEA [None]
  - PAROSMIA [None]
  - THROAT IRRITATION [None]
  - URINE COLOUR ABNORMAL [None]
  - VIRAL INFECTION [None]
  - VOMITING [None]
